FAERS Safety Report 9455304 (Version 3)
Quarter: 2014Q1

REPORT INFORMATION
  Report Type: Spontaneous
  Country: GB (occurrence: GB)
  Receive Date: 20130813
  Receipt Date: 20140207
  Transmission Date: 20141002
  Serious: Yes (Other)
  Sender: FDA-Public Use
  Company Number: GB-ACCORD-018851

PATIENT
  Age: 45 Year
  Sex: Female

DRUGS (8)
  1. MYCOPHENOLIC ACID [Suspect]
     Indication: MIXED CONNECTIVE TISSUE DISEASE
     Dosage: REDUCED THE DOSE FROM 2TO1.5 G OD FROM AN UNKNOWN DATE.?PATIENT TOOK NON MAH PRODUCT (CELLCEPT)
  2. ACETYLSALICYLIC ACID [Concomitant]
  3. WARFARIN/WARFARIN POTASSIUM/WARFARIN SODIUM/WARFARIN SODIUM CLATHRATE [Concomitant]
  4. LANSOPRAZOLE [Concomitant]
  5. PREDNISOLONE [Concomitant]
     Dosage: 10.5/12 ALTERNATE DAYS.
  6. LISINOPRIL [Concomitant]
  7. IRON [Concomitant]
     Indication: ANAEMIA
     Dosage: AS REQUIRED
  8. AMLODIPINE [Concomitant]

REACTIONS (5)
  - Haemorrhage [Not Recovered/Not Resolved]
  - Blood blister [Unknown]
  - Conjunctival haemorrhage [Unknown]
  - Off label use [Unknown]
  - International normalised ratio increased [Recovered/Resolved]
